FAERS Safety Report 8598692-9 (Version None)
Quarter: 2012Q3

REPORT INFORMATION
  Report Type: 
  Country: None (occurrence: None)
  Receive Date: 20120816
  Receipt Date: 19960508
  Transmission Date: 20120928
  Serious: Yes (Hospitalization)
  Sender: FDA-Public Use
  Company Number: US-ROCHE-1100652

PATIENT
  Sex: Male

DRUGS (5)
  1. NITROGLYCERIN [Concomitant]
     Route: 060
  2. ASPIRIN [Concomitant]
  3. HEPARIN [Concomitant]
     Route: 041
  4. HEPARIN [Concomitant]
     Route: 041
  5. ACTIVASE [Suspect]
     Indication: ACUTE MYOCARDIAL INFARCTION

REACTIONS (2)
  - VENTRICULAR TACHYCARDIA [None]
  - CHEST DISCOMFORT [None]
